FAERS Safety Report 19295838 (Version 1)
Quarter: 2021Q2

REPORT INFORMATION
  Report Type: Spontaneous
  Country: US (occurrence: US)
  Receive Date: 20210524
  Receipt Date: 20210524
  Transmission Date: 20210717
  Serious: Yes (Other)
  Sender: FDA-Public Use
  Company Number: US-TEVA-2021-US-1913871

PATIENT
  Age: 40 Year
  Sex: Female
  Weight: 97.52 kg

DRUGS (15)
  1. HYDROXYZINE [Concomitant]
     Active Substance: HYDROXYZINE HYDROCHLORIDE
     Dosage: 25 MILLIGRAM DAILY;
  2. QUERCETIN 2 [Concomitant]
     Dosage: 500 MILLIGRAM DAILY;
  3. ZYRTEC [Concomitant]
     Active Substance: CETIRIZINE HYDROCHLORIDE
     Dosage: 4 TABLETS DAILY
  4. GABAPENTIN. [Concomitant]
     Active Substance: GABAPENTIN
     Dosage: 800 MILLIGRAM DAILY;
  5. BENADRYL [Suspect]
     Active Substance: DIPHENHYDRAMINE HYDROCHLORIDE
     Route: 065
  6. SALT STICKS [Concomitant]
     Dosage: 5 PER DAY
  7. TAGAMET [Concomitant]
     Active Substance: CIMETIDINE
     Dosage: 4 TABLETS
  8. MONTELUKAST [Concomitant]
     Active Substance: MONTELUKAST SODIUM
     Dosage: 10 MILLIGRAM DAILY;
  9. EPIPEN [Concomitant]
     Active Substance: EPINEPHRINE
  10. XOLAIR [Concomitant]
     Active Substance: OMALIZUMAB
     Dosage: 150 PER ARM PER, PER MONTH
  11. AJOVY [Suspect]
     Active Substance: FREMANEZUMAB-VFRM
     Indication: MIGRAINE
     Route: 065
     Dates: start: 20210513
  12. TIZANIDINE. [Concomitant]
     Active Substance: TIZANIDINE
  13. ALLEGRA [Concomitant]
     Active Substance: FEXOFENADINE HYDROCHLORIDE
     Dosage: 4 TABLETS DAILY
  14. VITAMIN D [Concomitant]
     Active Substance: VITAMIN D NOS
     Dosage: 50,000 ONCE WEEKLY
  15. LEVOTHYROXINE. [Concomitant]
     Active Substance: LEVOTHYROXINE

REACTIONS (15)
  - Injection site swelling [Unknown]
  - Swollen tongue [Unknown]
  - Burning sensation [Unknown]
  - Pruritus [Not Recovered/Not Resolved]
  - Paraesthesia oral [Unknown]
  - Wheezing [Unknown]
  - Pharyngeal swelling [Unknown]
  - Injection site erythema [Unknown]
  - Injection site urticaria [Unknown]
  - Injection site warmth [Unknown]
  - Feeling hot [Unknown]
  - Chest discomfort [Unknown]
  - Dysphagia [Unknown]
  - Injection site indentation [Unknown]
  - Dyspnoea [Unknown]

NARRATIVE: CASE EVENT DATE: 20210513
